FAERS Safety Report 4414134-9 (Version None)
Quarter: 2004Q3

REPORT INFORMATION
  Report Type: 
  Country: None (occurrence: None)
  Receive Date: 20040728
  Receipt Date: 20040716
  Transmission Date: 20050211
  Serious: Yes (Hospitalization)
  Sender: FDA-Public Use
  Company Number: STA-AE-04-MTX-309

PATIENT
  Age: 71 Year
  Sex: Female

DRUGS (4)
  1. METHOTREXATE [Suspect]
     Indication: RHEUMATOID ARTHRITIS
     Dosage: 10 MG 1X PER 1 DAY , ORAL
     Route: 048
  2. PREDNISOLONE [Concomitant]
  3. FOLIC ACID [Concomitant]
  4. DIFLUCAN [Concomitant]

REACTIONS (3)
  - EXANTHEM [None]
  - OVERDOSE [None]
  - TOXIC EPIDERMAL NECROLYSIS [None]
